FAERS Safety Report 6395501-3 (Version None)
Quarter: 2009Q4

REPORT INFORMATION
  Report Type: 
  Country: None (occurrence: None)
  Receive Date: 20091009
  Receipt Date: 20091001
  Transmission Date: 20100525
  Serious: Yes (Death, Hospitalization, Other)
  Sender: FDA-Public Use
  Company Number: GB-ABBOTT-08P-167-0456941-00

PATIENT
  Sex: Female
  Weight: 47 kg

DRUGS (7)
  1. HUMIRA [Suspect]
     Indication: RHEUMATOID ARTHRITIS
     Route: 058
     Dates: start: 20070530, end: 20080204
  2. METHOTREXATE [Concomitant]
     Indication: DRUG USE FOR UNKNOWN INDICATION
     Dates: start: 20020923
  3. PREDNESOL [Concomitant]
     Indication: DRUG USE FOR UNKNOWN INDICATION
     Dates: start: 20020923
  4. CO-CODAMOL [Concomitant]
     Indication: DRUG USE FOR UNKNOWN INDICATION
     Dates: start: 20020923
  5. FOLIC ACID [Concomitant]
     Indication: DRUG USE FOR UNKNOWN INDICATION
     Dates: start: 20020923
  6. LEVOTHYROXINE SODIUM [Concomitant]
     Indication: DRUG USE FOR UNKNOWN INDICATION
     Dates: start: 20020923
  7. ZOTON [Concomitant]
     Indication: DRUG USE FOR UNKNOWN INDICATION
     Dates: start: 20020923

REACTIONS (8)
  - ASTHENIA [None]
  - BRONCHIAL CARCINOMA [None]
  - CACHEXIA [None]
  - CONDITION AGGRAVATED [None]
  - DYSPNOEA EXERTIONAL [None]
  - LOWER RESPIRATORY TRACT INFECTION [None]
  - LUNG CANCER METASTATIC [None]
  - MALAISE [None]
